FAERS Safety Report 9605292 (Version 1)
Quarter: 2013Q4

REPORT INFORMATION
  Report Type: Spontaneous
  Country: PL (occurrence: PL)
  Receive Date: 20131008
  Receipt Date: 20131008
  Transmission Date: 20140711
  Serious: Yes (Hospitalization)
  Sender: FDA-Public Use
  Company Number: PL-JNJFOC-20131004073

PATIENT
  Age: 17 Year
  Sex: Male
  Weight: 57.7 kg

DRUGS (1)
  1. RISPOLEPT [Suspect]
     Indication: ASPERGER^S DISORDER
     Dosage: (0.5 MG IN THE MORNING, 2.0 MG IN THE EVENING)
     Route: 048
     Dates: start: 20130826, end: 20130828

REACTIONS (5)
  - Muscle contracture [Recovering/Resolving]
  - Paraesthesia [Recovering/Resolving]
  - Hypertonia [Recovering/Resolving]
  - Dyskinesia [Recovering/Resolving]
  - Muscle spasms [Recovering/Resolving]
